FAERS Safety Report 6976115-0 (Version None)
Quarter: 2010Q3

REPORT INFORMATION
  Report Type: 
  Country: None (occurrence: None)
  Receive Date: 20100910
  Receipt Date: 20090407
  Transmission Date: 20110219
  Serious: No
  Sender: FDA-Public Use
  Company Number: US-WYE-H08855809

PATIENT
  Sex: Female
  Weight: 81.72 kg

DRUGS (12)
  1. PRISTIQ [Suspect]
     Indication: DEPRESSION
     Route: 048
     Dates: start: 20090403
  2. METFORMIN [Concomitant]
  3. SYNTHROID [Concomitant]
  4. TRAZODONE HCL [Concomitant]
  5. FUROSEMIDE [Concomitant]
  6. HYDROCHLOROTHIAZIDE [Concomitant]
  7. WARFARIN [Concomitant]
  8. PANTOPRAZOLE [Concomitant]
  9. LIPITOR [Concomitant]
  10. SOTALOL [Concomitant]
  11. MIRAPEX ^PHARMACIA-UPJOHN^ [Concomitant]
  12. TRIAMTERENE [Concomitant]

REACTIONS (4)
  - FATIGUE [None]
  - INSOMNIA [None]
  - NAUSEA [None]
  - SOMNOLENCE [None]
